FAERS Safety Report 8837240 (Version 1)
Quarter: 2012Q4

REPORT INFORMATION
  Report Type: Spontaneous
  Country: None (occurrence: None)
  Receive Date: 20121011
  Receipt Date: 20121011
  Transmission Date: 20130627
  Serious: No
  Sender: FDA-Public Use
  Company Number: None

PATIENT
  Sex: Female

DRUGS (3)
  1. KLONOPIN [Suspect]
     Dosage: klonopin 1qhs #30 DAW 0.5mg
  2. KLONOPIN [Suspect]
     Indication: ANXIETY
     Dosage: klonopin 1qhs #30 DAW 0.5mg
  3. KLONOPIN [Suspect]
     Dosage: klonopin 1qhs #30 DAW 0.5mg

REACTIONS (1)
  - Drug ineffective [None]
